FAERS Safety Report 8172299-X (Version None)
Quarter: 2012Q1

REPORT INFORMATION
  Report Type: 
  Country: None (occurrence: None)
  Receive Date: 20120229
  Receipt Date: 20120221
  Transmission Date: 20120608
  Serious: No
  Sender: FDA-Public Use
  Company Number: US-BIOGENIDEC-2012BI006408

PATIENT
  Age: 30 Year
  Sex: Female

DRUGS (2)
  1. TYSABRI [Suspect]
     Indication: MULTIPLE SCLEROSIS
     Route: 042
     Dates: end: 20120112
  2. TYSABRI [Suspect]
     Route: 042
     Dates: start: 20120112

REACTIONS (3)
  - SINUSITIS [None]
  - HEADACHE [None]
  - NASOPHARYNGITIS [None]
